FAERS Safety Report 9631036 (Version 2)
Quarter: 2013Q4

REPORT INFORMATION
  Report Type: Spontaneous
  Country: GB (occurrence: GB)
  Receive Date: 20131018
  Receipt Date: 20131018
  Transmission Date: 20140711
  Serious: Yes (Hospitalization, Disabling)
  Sender: FDA-Public Use
  Company Number: GB-BAYER-2013-046528

PATIENT
  Age: 15 Year
  Sex: Female
  Weight: 46 kg

DRUGS (1)
  1. YASMIN ED, FILM-COATED TABLETS, 0.03 MG/3 MG [Suspect]
     Indication: ENDOMETRIOSIS
     Dosage: UNK
     Route: 048
     Dates: start: 20130129, end: 20130326

REACTIONS (6)
  - Deep vein thrombosis [Recovered/Resolved with Sequelae]
  - Pain [Unknown]
  - Swelling [Unknown]
  - Peripheral coldness [Unknown]
  - Paraesthesia [Unknown]
  - Pedal pulse abnormal [Unknown]
